FAERS Safety Report 11551947 (Version 1)
Quarter: 2015Q3

REPORT INFORMATION
  Report Type: Spontaneous
  Country: US (occurrence: US)
  Receive Date: 20150903
  Receipt Date: 20150903
  Transmission Date: 20151125
  Serious: No
  Sender: FDA-Public Use
  Company Number: US-ELI_LILLY_AND_COMPANY-US201005005760

PATIENT
  Sex: Female

DRUGS (12)
  1. FUROSEMIDE. [Concomitant]
     Active Substance: FUROSEMIDE
  2. HUMALOG [Suspect]
     Active Substance: INSULIN LISPRO
     Indication: DIABETES MELLITUS
     Dosage: UNK, 3/D
  3. HUMALOG [Suspect]
     Active Substance: INSULIN LISPRO
     Dosage: 32 D/F, UNK
  4. METFORMIN [Concomitant]
     Active Substance: METFORMIN HYDROCHLORIDE
  5. ZOCOR [Concomitant]
     Active Substance: SIMVASTATIN
  6. POTASSIUM [Concomitant]
     Active Substance: POTASSIUM
  7. LISINOPRIL. [Concomitant]
     Active Substance: LISINOPRIL
  8. HUMALOG [Suspect]
     Active Substance: INSULIN LISPRO
     Dosage: 32 D/F, UNK
  9. HUMALOG [Suspect]
     Active Substance: INSULIN LISPRO
     Indication: DIABETES MELLITUS
     Dosage: UNK, 3/D
     Dates: start: 2005
  10. LANTUS [Concomitant]
     Active Substance: INSULIN GLARGINE
  11. AMLODIPINE [Concomitant]
     Active Substance: AMLODIPINE BESYLATE
  12. METOPROLOL [Concomitant]
     Active Substance: METOPROLOL

REACTIONS (5)
  - Injection site pain [Unknown]
  - Injection site urticaria [Unknown]
  - Visual acuity reduced [Not Recovered/Not Resolved]
  - Injection site haemorrhage [Unknown]
  - Vision blurred [Unknown]
